FAERS Safety Report 6543887-9 (Version None)
Quarter: 2010Q1

REPORT INFORMATION
  Report Type: 
  Country: None (occurrence: None)
  Receive Date: 20100120
  Receipt Date: 20100113
  Transmission Date: 20100710
  Serious: Yes (Death, Other)
  Sender: FDA-Public Use
  Company Number: CN-CELGENEUS-035-20785-10010791

PATIENT

DRUGS (6)
  1. THALOMID [Suspect]
     Indication: MULTIPLE MYELOMA
     Route: 048
  2. BORTEZOMIB [Suspect]
     Indication: MULTIPLE MYELOMA
     Route: 065
  3. DEXAMETHASONE [Suspect]
     Indication: MULTIPLE MYELOMA
     Route: 065
  4. PLATINOL [Suspect]
     Indication: MULTIPLE MYELOMA
     Route: 065
  5. CYCLOPHOSPHAMIDE [Suspect]
     Indication: MULTIPLE MYELOMA
     Route: 065
  6. ETOPOSIDE [Suspect]
     Indication: MULTIPLE MYELOMA
     Route: 065

REACTIONS (19)
  - BLOOD GLUCOSE INCREASED [None]
  - CONSTIPATION [None]
  - DIARRHOEA [None]
  - DISEASE PROGRESSION [None]
  - FATIGUE [None]
  - HAEMOGLOBIN DECREASED [None]
  - LIPIDS INCREASED [None]
  - MUSCULOSKELETAL PAIN [None]
  - NAUSEA [None]
  - NEUROPATHY PERIPHERAL [None]
  - OEDEMA [None]
  - PLATELET COUNT DECREASED [None]
  - PYREXIA [None]
  - RASH [None]
  - RENAL FAILURE ACUTE [None]
  - SINUS BRADYCARDIA [None]
  - TRAUMATIC LUNG INJURY [None]
  - TUMOUR LYSIS SYNDROME [None]
  - WHITE BLOOD CELL COUNT DECREASED [None]
